FAERS Safety Report 4951511-1 (Version None)
Quarter: 2006Q1

REPORT INFORMATION
  Report Type: 
  Country: None (occurrence: None)
  Receive Date: 20060317
  Receipt Date: 20050204
  Transmission Date: 20060701
  Serious: No
  Sender: FDA-Public Use
  Company Number: S05-USA-00876-01

PATIENT
  Age: 75 Year
  Sex: Female

DRUGS (7)
  1. MONUROL [Suspect]
     Indication: URINARY TRACT INFECTION
     Dosage: 3 G ONCE PO
     Route: 048
     Dates: start: 20050122, end: 20050122
  2. MANDELIC ACID [Concomitant]
  3. ASCORBIC ACID [Concomitant]
  4. RIMANTADINE HCL [Concomitant]
  5. CARBIDOPA AND LEVODOPA [Concomitant]
  6. ANTIHYPERTENSIVES [Concomitant]
  7. VITAMINS [Concomitant]

REACTIONS (1)
  - HAEMATURIA [None]
